FAERS Safety Report 23742816 (Version 1)
Quarter: 2024Q2

REPORT INFORMATION
  Report Type: Spontaneous
  Country: US (occurrence: US)
  Receive Date: 20240415
  Receipt Date: 20240415
  Transmission Date: 20240716
  Serious: Yes (Life-Threatening, Other)
  Sender: FDA-Public Use
  Company Number: US-FreseniusKabi-FK202406126

PATIENT
  Age: 84 Year
  Sex: Male

DRUGS (1)
  1. PROTAMINE [Suspect]
     Active Substance: PROTAMINE
     Indication: Product used for unknown indication
     Route: 042

REACTIONS (1)
  - Right ventricular failure [Recovered/Resolved]
